FAERS Safety Report 9604302 (Version 1)
Quarter: 2013Q4

REPORT INFORMATION
  Report Type: Spontaneous
  Country: ES (occurrence: ES)
  Receive Date: 20131008
  Receipt Date: 20131008
  Transmission Date: 20140711
  Serious: Yes (Death, Other)
  Sender: FDA-Public Use
  Company Number: PHHY2013ES112051

PATIENT
  Sex: 0

DRUGS (2)
  1. CERTICAN [Suspect]
     Indication: PROPHYLAXIS AGAINST TRANSPLANT REJECTION
     Dosage: UNK
  2. CERTICAN [Suspect]
     Indication: OFF LABEL USE

REACTIONS (2)
  - Ischaemic cardiomyopathy [Fatal]
  - Liver transplant rejection [Unknown]
